FAERS Safety Report 8702541 (Version 8)
Quarter: 2016Q2

REPORT INFORMATION
  Report Type: Spontaneous
  Country: US (occurrence: US)
  Receive Date: 20120803
  Receipt Date: 20160601
  Transmission Date: 20160815
  Serious: No
  Sender: FDA-Public Use
  Company Number: US-PFIZER INC-2012185444

PATIENT
  Age: 59 Year
  Sex: Female
  Weight: 56 kg

DRUGS (9)
  1. PREMARIN [Suspect]
     Active Substance: ESTROGENS, CONJUGATED
     Indication: ARTIFICIAL MENOPAUSE
     Dosage: 1.25 MG, DAILY
     Route: 048
     Dates: start: 1980
  2. PREMARIN [Suspect]
     Active Substance: ESTROGENS, CONJUGATED
     Indication: MENOPAUSAL SYMPTOMS
     Dosage: 1.25 MG, 1X/DAY
     Route: 048
     Dates: start: 1983
  3. PREMARIN [Suspect]
     Active Substance: ESTROGENS, CONJUGATED
     Indication: HORMONE REPLACEMENT THERAPY
  4. PREMARIN [Suspect]
     Active Substance: ESTROGENS, CONJUGATED
     Dosage: ALTERNATE DAY, (1/4 APPLICATOR 1 X EVERY OTHER DAY)
  5. SYNTHROID [Concomitant]
     Active Substance: LEVOTHYROXINE SODIUM
     Indication: HYPOTHYROIDISM
     Dosage: 100 UG, 1X/DAY
  6. PREMARIN [Suspect]
     Active Substance: ESTROGENS, CONJUGATED
     Dosage: 0.625 MG, DAILY
     Dates: start: 2013
  7. PREMARIN [Suspect]
     Active Substance: ESTROGENS, CONJUGATED
     Indication: VULVOVAGINAL DRYNESS
     Dosage: UNK, 1X/DAY
     Dates: start: 2007
  8. VOLTAREN [Concomitant]
     Active Substance: DICLOFENAC SODIUM
     Indication: ARTHRITIS
     Dosage: UNK, AS NEEDED
     Route: 061
  9. ASPIRIN. [Concomitant]
     Active Substance: ASPIRIN
     Dosage: 81 MG, 1X/DAY

REACTIONS (13)
  - Drug effect decreased [Unknown]
  - Drug dispensing error [Unknown]
  - Disturbance in attention [Not Recovered/Not Resolved]
  - Sleep phase rhythm disturbance [Unknown]
  - Drug ineffective [Recovered/Resolved]
  - Muscle spasms [Unknown]
  - Hormone level abnormal [Not Recovered/Not Resolved]
  - Vulvovaginal discomfort [Not Recovered/Not Resolved]
  - Hirsutism [Unknown]
  - Product quality issue [Unknown]
  - Dry skin [Not Recovered/Not Resolved]
  - Hyperhidrosis [Unknown]
  - Product physical issue [Unknown]

NARRATIVE: CASE EVENT DATE: 201209
